FAERS Safety Report 16918516 (Version 8)
Quarter: 2022Q1

REPORT INFORMATION
  Report Type: Spontaneous
  Country: US (occurrence: US)
  Receive Date: 20191015
  Receipt Date: 20220328
  Transmission Date: 20220423
  Serious: Yes (Hospitalization, Other)
  Sender: FDA-Public Use
  Company Number: US-PFIZER INC-2019388816

PATIENT
  Age: 64 Year
  Sex: Female
  Weight: 54.422 kg

DRUGS (3)
  1. PREMARIN [Suspect]
     Active Substance: ESTROGENS, CONJUGATED
     Indication: Blood oestrogen decreased
     Dosage: 1 DF, DAILY (0.625 1 DAILY)
  2. PREMARIN [Suspect]
     Active Substance: ESTROGENS, CONJUGATED
     Indication: Urethral prolapse
     Dosage: 0.625 MG, 1X/DAY (ONCE A NIGHT)
     Dates: end: 202005
  3. PREMARIN [Suspect]
     Active Substance: ESTROGENS, CONJUGATED
     Dosage: 0.625 MG, ALTERNATE DAY(TAKE 1 TABLET EVERY OTHER DAY)
     Route: 048

REACTIONS (9)
  - Lung disorder [Recovered/Resolved]
  - Hernia [Recovered/Resolved]
  - Choking [Unknown]
  - Mental impairment [Unknown]
  - Gastrooesophageal reflux disease [Recovered/Resolved]
  - Emotional disorder [Unknown]
  - Dysphagia [Unknown]
  - Off label use [Unknown]
  - Skin laceration [Unknown]

NARRATIVE: CASE EVENT DATE: 20170901
